FAERS Safety Report 15845892 (Version 1)
Quarter: 2019Q1

REPORT INFORMATION
  Report Type: Spontaneous
  Country: US (occurrence: US)
  Receive Date: 20190120
  Receipt Date: 20190120
  Transmission Date: 20190417
  Serious: No
  Sender: FDA-Public Use
  Company Number: US-TEVA-2018-US-993211

PATIENT
  Sex: Female

DRUGS (1)
  1. TAMOXIFEN ACTAVIS [Suspect]
     Active Substance: TAMOXIFEN
     Route: 065
     Dates: start: 201810, end: 20181219

REACTIONS (7)
  - Product substitution issue [Unknown]
  - Feeling cold [Not Recovered/Not Resolved]
  - Depressed mood [Not Recovered/Not Resolved]
  - Chills [Not Recovered/Not Resolved]
  - Hot flush [Not Recovered/Not Resolved]
  - Lethargy [Not Recovered/Not Resolved]
  - Influenza like illness [Not Recovered/Not Resolved]
